FAERS Safety Report 11982994 (Version 4)
Quarter: 2016Q2

REPORT INFORMATION
  Report Type: Spontaneous
  Country: US (occurrence: US)
  Receive Date: 20160201
  Receipt Date: 20160411
  Transmission Date: 20160815
  Serious: Yes (Other)
  Sender: FDA-Public Use
  Company Number: US-PFIZER INC-2016046704

PATIENT
  Age: 53 Year
  Sex: Male
  Weight: 122.45 kg

DRUGS (9)
  1. METOPROLOL. [Concomitant]
     Active Substance: METOPROLOL
     Indication: HEART RATE INCREASED
     Dosage: 50 MG, 1X/DAY
     Route: 048
  2. ASPIRIN. [Concomitant]
     Active Substance: ASPIRIN
     Indication: ANTICOAGULANT THERAPY
     Dosage: 81 MG, 1X/DAY
  3. NOVOLOG [Concomitant]
     Active Substance: INSULIN ASPART
     Indication: TYPE 2 DIABETES MELLITUS
     Dosage: 15 UNIT INJECTION WITH EACH MEAL
  4. NEURONTIN [Suspect]
     Active Substance: GABAPENTIN
     Dosage: 2 DF, DAILY
     Route: 048
  5. NEURONTIN [Suspect]
     Active Substance: GABAPENTIN
     Dosage: 300 MG, 1X/DAY (HS)
     Route: 048
     Dates: end: 2015
  6. LANTUS [Concomitant]
     Active Substance: INSULIN GLARGINE
     Indication: TYPE 2 DIABETES MELLITUS
     Dosage: 15 UNITS TO 45 UNITS ON SLIDING SCALE AT NIGHT
     Dates: start: 201311
  7. NEURONTIN [Suspect]
     Active Substance: GABAPENTIN
     Indication: NEUROPATHY PERIPHERAL
     Dosage: 1 DF, DAILY
     Route: 048
  8. ATORVASTATIN [Concomitant]
     Active Substance: ATORVASTATIN
     Indication: BLOOD CHOLESTEROL ABNORMAL
     Dosage: 20 MG, 1X/DAY
     Route: 048
  9. VALSARTAN. [Concomitant]
     Active Substance: VALSARTAN
     Indication: HYPERTENSION
     Dosage: (80-6.25 TABLET), 1X/DAY
     Route: 048

REACTIONS (6)
  - Feeling abnormal [Unknown]
  - Nightmare [Recovered/Resolved]
  - Mental impairment [Unknown]
  - Memory impairment [Recovered/Resolved]
  - Drug ineffective for unapproved indication [Unknown]
  - Cardiovascular disorder [Unknown]

NARRATIVE: CASE EVENT DATE: 201511
